FAERS Safety Report 14799551 (Version 1)
Quarter: 2018Q2

REPORT INFORMATION
  Report Type: Spontaneous
  Country: MX (occurrence: MX)
  Receive Date: 20180424
  Receipt Date: 20180424
  Transmission Date: 20180711
  Serious: Yes (Other)
  Sender: FDA-Public Use
  Company Number: MX-009507513-1704MEX011169

PATIENT
  Age: 26 Year
  Sex: Male
  Weight: 115 kg

DRUGS (1)
  1. KEYTRUDA [Suspect]
     Active Substance: PEMBROLIZUMAB
     Indication: METASTATIC MALIGNANT MELANOMA
     Dosage: 2 MG/KG , Q3W
     Dates: start: 201601

REACTIONS (35)
  - Skin lesion [Unknown]
  - White blood cell count increased [Unknown]
  - Pharyngeal erythema [Unknown]
  - Red blood cell count increased [Not Recovered/Not Resolved]
  - Haematocrit increased [Unknown]
  - Flatulence [Recovered/Resolved]
  - Rhinorrhoea [Unknown]
  - Photopsia [Unknown]
  - Dizziness [Unknown]
  - Wheezing [Unknown]
  - Pharyngeal erythema [Recovered/Resolved]
  - Blood lactate dehydrogenase increased [Not Recovered/Not Resolved]
  - Arthralgia [Unknown]
  - Urinary tract infection [Recovered/Resolved]
  - Haematocrit decreased [Unknown]
  - Gastrointestinal pain [Recovered/Resolved]
  - Nasopharyngitis [Recovered/Resolved]
  - Cough [Recovered/Resolved]
  - Blood lactate dehydrogenase increased [Unknown]
  - Skin disorder [Unknown]
  - Nausea [Unknown]
  - Haemoglobin increased [Unknown]
  - Bilirubin conjugated increased [Unknown]
  - Vitiligo [Not Recovered/Not Resolved]
  - Bronchospasm [Unknown]
  - Rhinorrhoea [Recovered/Resolved]
  - Discomfort [Unknown]
  - Breath sounds abnormal [Unknown]
  - Chest pain [Recovered/Resolved]
  - Blood alkaline phosphatase increased [Recovered/Resolved]
  - Arthralgia [Recovered/Resolved]
  - Abdominal distension [Recovered/Resolved]
  - Cough [Unknown]
  - Hemiparaesthesia [Unknown]
  - Somnolence [Unknown]

NARRATIVE: CASE EVENT DATE: 201612
